FAERS Safety Report 12190220 (Version 1)
Quarter: 2016Q1

REPORT INFORMATION
  Report Type: Spontaneous
  Country: US (occurrence: US)
  Receive Date: 20160318
  Receipt Date: 20160318
  Transmission Date: 20160526
  Serious: Yes (Other)
  Sender: FDA-Public Use
  Company Number: US-CIPLA LTD.-2016US02518

PATIENT

DRUGS (9)
  1. GEMCITABINE [Suspect]
     Active Substance: GEMCITABINE\GEMCITABINE HYDROCHLORIDE
     Indication: PANCREATIC CARCINOMA STAGE IV
     Dosage: UNK
     Route: 065
  2. OXALIPLATIN. [Suspect]
     Active Substance: OXALIPLATIN
     Indication: PANCREATIC CARCINOMA STAGE IV
     Dosage: UNK
     Route: 065
  3. ERLOTINIB [Suspect]
     Active Substance: ERLOTINIB
     Dosage: UNK
     Route: 065
  4. ERLOTINIB [Suspect]
     Active Substance: ERLOTINIB
     Indication: PANCREATIC CARCINOMA STAGE IV
     Dosage: 100 MG, QD
     Route: 048
  5. HEDGEHOG INHIBITOR (IPI-926) [Suspect]
     Active Substance: PATIDEGIB
     Indication: PANCREATIC CARCINOMA STAGE IV
     Dosage: UNK
     Route: 048
  6. GEMCITABINE [Suspect]
     Active Substance: GEMCITABINE\GEMCITABINE HYDROCHLORIDE
     Dosage: UNK
     Route: 065
  7. CAPECITABINE. [Suspect]
     Active Substance: CAPECITABINE
     Dosage: UNK
     Route: 065
  8. ERLOTINIB [Suspect]
     Active Substance: ERLOTINIB
     Dosage: 150 MG
     Route: 048
  9. CAPECITABINE. [Suspect]
     Active Substance: CAPECITABINE
     Indication: PANCREATIC CARCINOMA STAGE IV
     Dosage: 1000 MG, BID, ON DAYS 1-7 OUT OF 14 DAYS (7/7 SCHEDULE)
     Route: 048

REACTIONS (3)
  - Fatigue [Unknown]
  - Drug dose omission [None]
  - Treatment failure [Unknown]
